FAERS Safety Report 13112813 (Version 1)
Quarter: 2017Q1

REPORT INFORMATION
  Report Type: Spontaneous
  Country: US (occurrence: US)
  Receive Date: 20170113
  Receipt Date: 20170113
  Transmission Date: 20170428
  Serious: No
  Sender: FDA-Public Use
  Company Number: US-SUN PHARMACEUTICAL INDUSTRIES LTD-2016US-115370

PATIENT
  Sex: Female

DRUGS (1)
  1. EURAX [Suspect]
     Active Substance: CROTAMITON
     Indication: PRURITUS
     Dosage: UNK
     Route: 061

REACTIONS (3)
  - Drug ineffective [Unknown]
  - Rash [Unknown]
  - Pruritus [Not Recovered/Not Resolved]
